FAERS Safety Report 14205548 (Version 1)
Quarter: 2017Q4

REPORT INFORMATION
  Report Type: Spontaneous
  Country: US (occurrence: None)
  Receive Date: 20171118
  Receipt Date: 20171118
  Transmission Date: 20180321
  Serious: No
  Sender: FDA-Public Use
  Company Number: None

PATIENT
  Sex: Male
  Weight: 74.84 kg

DRUGS (1)
  1. FORTEO [Suspect]
     Active Substance: TERIPARATIDE
     Indication: OSTEOPOROSIS
     Route: 058
     Dates: start: 20171017

REACTIONS (7)
  - Injection site bruising [None]
  - Injection site pruritus [None]
  - Injection site swelling [None]
  - Injection site pain [None]
  - Injection site rash [None]
  - Dysgeusia [None]
  - Injection site erythema [None]
